FAERS Safety Report 5337079-9 (Version None)
Quarter: 2007Q2

REPORT INFORMATION
  Report Type: 
  Country: None (occurrence: None)
  Receive Date: 20070523
  Receipt Date: 20070514
  Transmission Date: 20071010
  Serious: Yes (Hospitalization)
  Sender: FDA-Public Use
  Company Number: 2007JP002108

PATIENT
  Age: 78 Year
  Sex: Female

DRUGS (5)
  1. VESICARE [Suspect]
     Indication: HYPERTONIC BLADDER
     Dosage: 5 MG, UID/QD, ORAL
     Route: 048
  2. DIOVAN [Concomitant]
  3. NORVASC [Concomitant]
  4. JUVELA (TOCOPHERYL NICOTINATE) [Concomitant]
  5. PRORENAL (LIMAPROST) [Concomitant]

REACTIONS (1)
  - PYELONEPHRITIS [None]
